FAERS Safety Report 24677682 (Version 1)
Quarter: 2024Q4

REPORT INFORMATION
  Report Type: Spontaneous
  Country: US (occurrence: US)
  Receive Date: 20241129
  Receipt Date: 20241129
  Transmission Date: 20250114
  Serious: No
  Sender: LUPIN
  Company Number: US-LUPIN PHARMACEUTICALS INC.-2024-11465

PATIENT

DRUGS (2)
  1. ALBUTEROL SULFATE [Suspect]
     Active Substance: ALBUTEROL SULFATE
     Indication: Asthma
     Dosage: UNK, QD, 10 TO 15 PUFFS A DAY
     Dates: start: 20241108
  2. PULMICORT TURBUHALER [Concomitant]
     Active Substance: BUDESONIDE
     Indication: Product used for unknown indication
     Dosage: UNK, NIGHT-TIME INHALER
     Route: 065

REACTIONS (6)
  - Wrong technique in product usage process [Unknown]
  - Device malfunction [Unknown]
  - Device delivery system issue [Unknown]
  - Product lot number issue [Unknown]
  - Product expiration date issue [Unknown]
  - No adverse event [Unknown]
